FAERS Safety Report 8583856-0 (Version None)
Quarter: 2012Q3

REPORT INFORMATION
  Report Type: 
  Country: None (occurrence: None)
  Receive Date: 20120810
  Receipt Date: 20120731
  Transmission Date: 20120928
  Serious: Yes (Hospitalization, Other)
  Sender: FDA-Public Use
  Company Number: US-009507513-1203USA00778

PATIENT

DRUGS (7)
  1. VITAMIN D [Concomitant]
     Indication: OSTEOPENIA
  2. ALENDRONATE SODIUM [Suspect]
     Dosage: 70 MG, UNK
     Dates: start: 20080728
  3. FOSAMAX [Suspect]
     Indication: OSTEOPENIA
     Dosage: 70 MG, UNK
     Route: 048
     Dates: start: 20040106, end: 20090101
  4. CALCIUM (UNSPECIFIED) [Concomitant]
     Indication: OSTEOPENIA
  5. FOSAMAX [Suspect]
     Indication: MENOPAUSE
     Dosage: 35 MG, UNK
     Route: 048
     Dates: start: 20040417, end: 20040919
  6. FOSAMAX [Suspect]
     Indication: OSTEOPOROSIS
  7. OS-CAL (CALCIUM CARBONATE) [Concomitant]
     Dosage: UNK UNK, BID
     Route: 048
     Dates: start: 20020101

REACTIONS (12)
  - TOOTH DISORDER [None]
  - VITAMIN D DEFICIENCY [None]
  - DEPRESSION [None]
  - ABSCESS [None]
  - FALL [None]
  - GAIT DISTURBANCE [None]
  - CONTUSION [None]
  - ARTHRALGIA [None]
  - FEMUR FRACTURE [None]
  - DEVICE FAILURE [None]
  - HORMONE LEVEL ABNORMAL [None]
  - CALCIUM DEFICIENCY [None]
